FAERS Safety Report 8823301 (Version 6)
Quarter: 2013Q1

REPORT INFORMATION
  Report Type: Report from Study
  Country: US (occurrence: US)
  Receive Date: 20121003
  Receipt Date: 20130306
  Transmission Date: 20140127
  Serious: Yes (Other)
  Sender: FDA-Public Use
  Company Number: US-ROCHE-1103213

PATIENT
  Age: 75 None
  Sex: Male

DRUGS (3)
  1. ZELBORAF [Suspect]
     Indication: METASTATIC MALIGNANT MELANOMA
     Route: 048
     Dates: start: 201111, end: 201202
  2. ZELBORAF [Suspect]
     Route: 048
     Dates: start: 20120223
  3. LORATAB [Concomitant]
     Indication: PAIN
     Route: 048

REACTIONS (30)
  - Renal failure [Recovering/Resolving]
  - Back pain [Not Recovered/Not Resolved]
  - Alopecia [Unknown]
  - Skin papilloma [Unknown]
  - Skin cancer [Unknown]
  - Incorrect storage of drug [Recovered/Resolved]
  - Arthralgia [Not Recovered/Not Resolved]
  - Intervertebral disc protrusion [Not Recovered/Not Resolved]
  - Sunburn [Not Recovered/Not Resolved]
  - Arthritis [Not Recovered/Not Resolved]
  - Gait disturbance [Not Recovered/Not Resolved]
  - Joint range of motion decreased [Not Recovered/Not Resolved]
  - Pain in extremity [Not Recovered/Not Resolved]
  - Pain in extremity [Not Recovered/Not Resolved]
  - Arthralgia [Not Recovered/Not Resolved]
  - Intervertebral disc protrusion [Recovered/Resolved]
  - Blood creatinine increased [Recovered/Resolved]
  - Gingival bleeding [Not Recovered/Not Resolved]
  - Malaise [Recovered/Resolved]
  - Decreased appetite [Recovered/Resolved]
  - Dysgeusia [Recovered/Resolved]
  - Blood creatinine abnormal [Recovering/Resolving]
  - Joint stiffness [Not Recovered/Not Resolved]
  - Sunburn [Not Recovered/Not Resolved]
  - Local swelling [Not Recovered/Not Resolved]
  - Pruritus [Not Recovered/Not Resolved]
  - Asthenia [Recovering/Resolving]
  - Renal disorder [Unknown]
  - Arthritis [Not Recovered/Not Resolved]
  - Arthritis [Not Recovered/Not Resolved]
